FAERS Safety Report 6022980-3 (Version None)
Quarter: 2008Q4

REPORT INFORMATION
  Report Type: 
  Country: None (occurrence: None)
  Receive Date: 20081230
  Receipt Date: 20080519
  Transmission Date: 20090506
  Serious: No
  Sender: FDA-Public Use
  Company Number: US-ABBOTT-08P-163-0452457-00

PATIENT
  Sex: Female
  Weight: 20.43 kg

DRUGS (3)
  1. OMNICEF [Suspect]
     Indication: UPPER RESPIRATORY TRACT INFECTION
     Route: 048
     Dates: start: 20080512
  2. ROBITUSSIN [Concomitant]
     Indication: UPPER RESPIRATORY TRACT INFECTION
     Route: 048
     Dates: start: 20080512
  3. MONTELUKAST SODIUM [Concomitant]
     Indication: UPPER RESPIRATORY TRACT INFECTION
     Route: 048
     Dates: start: 20080512

REACTIONS (2)
  - EAR PAIN [None]
  - PYREXIA [None]
